FAERS Safety Report 8036010-5 (Version None)
Quarter: 2012Q1

REPORT INFORMATION
  Report Type: 
  Country: None (occurrence: None)
  Receive Date: 20120111
  Receipt Date: 20120103
  Transmission Date: 20120608
  Serious: Yes (Hospitalization)
  Sender: FDA-Public Use
  Company Number: US-ASTELLAS-2011US007645

PATIENT
  Sex: Male
  Weight: 96 kg

DRUGS (6)
  1. TENORMIN [Concomitant]
     Indication: HYPERTENSION
     Dosage: 50 MG, UID/QD
     Route: 048
     Dates: start: 19950101
  2. ASPIRIN [Concomitant]
     Indication: PROPHYLAXIS
     Dosage: 81 MG, UID/QD
     Route: 048
     Dates: start: 20020101
  3. SUSPECT STUDY DRUG [Suspect]
     Indication: PRODUCT USED FOR UNKNOWN INDICATION
     Dosage: UNK
     Route: 065
  4. NAPROXEN (ALEVE) [Concomitant]
     Indication: ARTHRITIS
     Dosage: 1 DF, UID/QD
     Route: 048
     Dates: start: 20020101
  5. ADENOSCAN [Suspect]
     Indication: SCAN MYOCARDIAL PERFUSION
     Dosage: 80.3 MG (13.4 MG, 1 IN 1 MIN)
     Route: 042
     Dates: start: 20111025, end: 20111025
  6. MULTI-VITAMIN [Concomitant]
     Indication: SUPPLEMENTATION THERAPY
     Dosage: 1 DF, UID/QD
     Route: 065
     Dates: start: 20020101

REACTIONS (2)
  - CORONARY ARTERY DISEASE [None]
  - CORONARY ARTERY STENOSIS [None]
